FAERS Safety Report 4920684-9 (Version None)
Quarter: 2006Q1

REPORT INFORMATION
  Report Type: 
  Country: None (occurrence: None)
  Receive Date: 20060216
  Receipt Date: 20060206
  Transmission Date: 20060701
  Serious: Yes (Death)
  Sender: FDA-Public Use
  Company Number: MEDI-0004119

PATIENT
  Sex: Male
  Weight: 3 kg

DRUGS (10)
  1. SYNAGIS [Suspect]
     Indication: ANTIVIRAL PROPHYLAXIS
     Dosage: 1 IN 30 D, INTRAMUSCULAR; 0.5 ML, 1 IN 30 D, INTRAMUSCULAR
     Route: 030
     Dates: start: 20051025, end: 20051122
  2. SYNAGIS [Suspect]
     Indication: ANTIVIRAL PROPHYLAXIS
     Dosage: 1 IN 30 D, INTRAMUSCULAR; 0.5 ML, 1 IN 30 D, INTRAMUSCULAR
     Route: 030
     Dates: start: 20051025
  3. BUDENOSIDE (BUDESONIDE) [Concomitant]
  4. GAVISCON [Concomitant]
  5. RANITIDINE [Concomitant]
  6. SYNTRON (SODIUM FEREDETATE) [Concomitant]
  7. DALIVIT [Concomitant]
  8. DOBUTAMINE HCL [Concomitant]
  9. HYDROCORTISONE [Concomitant]
  10. DEXAMETHASONE [Concomitant]

REACTIONS (1)
  - DRUG INEFFECTIVE [None]
